FAERS Safety Report 4820532-1 (Version None)
Quarter: 2005Q4

REPORT INFORMATION
  Report Type: 
  Country: None (occurrence: None)
  Receive Date: 20051104
  Receipt Date: 20051101
  Transmission Date: 20060501
  Serious: Yes (Death, Hospitalization)
  Sender: FDA-Public Use
  Company Number: 2005UW16523

PATIENT
  Sex: Female

DRUGS (1)
  1. CRESTOR [Suspect]
     Route: 048
     Dates: start: 20030101

REACTIONS (6)
  - BRAIN DAMAGE [None]
  - FALL [None]
  - HAEMATURIA [None]
  - MUSCULAR WEAKNESS [None]
  - RENAL DISORDER [None]
  - RENAL FAILURE [None]
